FAERS Safety Report 14072243 (Version 1)
Quarter: 2017Q4

REPORT INFORMATION
  Report Type: Report from Study
  Country: HR (occurrence: HR)
  Receive Date: 20171011
  Receipt Date: 20171011
  Transmission Date: 20180321
  Serious: Yes (Other)
  Sender: FDA-Public Use
  Company Number: PHHY2016HR185167

PATIENT
  Age: 52 Year
  Sex: Female

DRUGS (2)
  1. ANGAL [Suspect]
     Active Substance: CHLORHEXIDINE\LIDOCAINE
     Indication: OROPHARYNGEAL PAIN
     Route: 065
  2. NEO ANGIN (BENZALKONIUM CHLORIDE\HEXETIDINE) [Suspect]
     Active Substance: BENZALKONIUM CHLORIDE\HEXETIDINE
     Indication: OROPHARYNGEAL PAIN
     Route: 065

REACTIONS (8)
  - Back pain [Unknown]
  - Cough [Unknown]
  - Angina pectoris [Unknown]
  - Headache [Unknown]
  - Abdominal pain [Unknown]
  - Diarrhoea [Unknown]
  - Abdominal distension [Unknown]
  - Constipation [Unknown]
